FAERS Safety Report 8293758-5 (Version None)
Quarter: 2012Q2

REPORT INFORMATION
  Report Type: 
  Country: None (occurrence: None)
  Receive Date: 20120413
  Receipt Date: 20120403
  Transmission Date: 20120825
  Serious: Yes (Other)
  Sender: FDA-Public Use
  Company Number: EU-2012-10109

PATIENT
  Age: 40 Year
  Sex: Female

DRUGS (1)
  1. PLETAL [Suspect]
     Dosage: 100 MG MILLIGRAM(S), SINGLE, ORAL
     Route: 048
     Dates: start: 20111026, end: 20111026

REACTIONS (2)
  - ANXIETY [None]
  - NERVOUSNESS [None]
